FAERS Safety Report 12157774 (Version 1)
Quarter: 2016Q1

REPORT INFORMATION
  Report Type: Spontaneous
  Country: US (occurrence: US)
  Receive Date: 20160308
  Receipt Date: 20160308
  Transmission Date: 20160526
  Serious: No
  Sender: FDA-Public Use
  Company Number: US-JNJFOC-20150110095

PATIENT
  Age: 71 Year
  Sex: Female

DRUGS (9)
  1. SIMVASTATIN. [Concomitant]
     Active Substance: SIMVASTATIN
  2. IBUPROFEN. [Concomitant]
     Active Substance: IBUPROFEN
  3. FOLIC ACID. [Concomitant]
     Active Substance: FOLIC ACID
  4. VITAMIN D [Concomitant]
     Active Substance: CHOLECALCIFEROL
  5. TAMSULOSIN [Concomitant]
     Active Substance: TAMSULOSIN
  6. VITAMIN C [Concomitant]
     Active Substance: ASCORBIC ACID
  7. IMBRUVICA [Suspect]
     Active Substance: IBRUTINIB
     Indication: CHRONIC LYMPHOCYTIC LEUKAEMIA
     Dates: start: 20141210
  8. CENTRUM NOS [Concomitant]
  9. ASPIRIN. [Concomitant]
     Active Substance: ASPIRIN

REACTIONS (2)
  - Somnolence [Not Recovered/Not Resolved]
  - Fatigue [Not Recovered/Not Resolved]

NARRATIVE: CASE EVENT DATE: 201412
